FAERS Safety Report 13493142 (Version 1)
Quarter: 2017Q2

REPORT INFORMATION
  Report Type: Spontaneous
  Country: US (occurrence: US)
  Receive Date: 20170427
  Receipt Date: 20170427
  Transmission Date: 20170830
  Serious: No
  Sender: FDA-Public Use
  Company Number: US-ROCHE-1321087

PATIENT
  Age: 85 Year
  Sex: Male
  Weight: 85.35 kg

DRUGS (15)
  1. ALBUTEROL. [Concomitant]
     Active Substance: ALBUTEROL
  2. FORMOTEROL [Concomitant]
     Active Substance: FORMOTEROL
  3. ZOCOR [Concomitant]
     Active Substance: SIMVASTATIN
  4. MIDODRINE [Concomitant]
     Active Substance: MIDODRINE
  5. DRAMAMINE [Concomitant]
     Active Substance: DIMENHYDRINATE
  6. CARVEDILOL. [Concomitant]
     Active Substance: CARVEDILOL
     Route: 065
  7. COREG [Concomitant]
     Active Substance: CARVEDILOL
     Route: 065
  8. SYMBICORT [Concomitant]
     Active Substance: BUDESONIDE\FORMOTEROL FUMARATE DIHYDRATE
  9. VITAMIN C [Concomitant]
     Active Substance: ASCORBIC ACID
  10. ARICEPT [Concomitant]
     Active Substance: DONEPEZIL HYDROCHLORIDE
  11. DONEPEZIL. [Concomitant]
     Active Substance: DONEPEZIL
  12. ERIVEDGE [Suspect]
     Active Substance: VISMODEGIB
     Indication: BASAL CELL CARCINOMA
     Route: 048
     Dates: start: 20130926
  13. SPIRIVA [Concomitant]
     Active Substance: TIOTROPIUM BROMIDE MONOHYDRATE
  14. SIMVASTATIN. [Concomitant]
     Active Substance: SIMVASTATIN
  15. ASA [Concomitant]
     Active Substance: ASPIRIN
     Route: 048

REACTIONS (3)
  - Alopecia [Not Recovered/Not Resolved]
  - Ageusia [Unknown]
  - Hunger [Unknown]

NARRATIVE: CASE EVENT DATE: 20140315
